FAERS Safety Report 6856543-4 (Version None)
Quarter: 2010Q3

REPORT INFORMATION
  Report Type: 
  Country: None (occurrence: None)
  Receive Date: 20100716
  Receipt Date: 20100716
  Transmission Date: 20110219
  Serious: Yes (Death, Life-Threatening)
  Sender: FDA-Public Use
  Company Number: None

PATIENT
  Age: 31 Year
  Sex: Male
  Weight: 97.5234 kg

DRUGS (2)
  1. CYMBALTA [Suspect]
     Dosage: 60 MG DAILY PO
     Route: 048
     Dates: start: 20100216, end: 20100609
  2. CYMBALTA [Suspect]

REACTIONS (19)
  - APPARENT DEATH [None]
  - ASTHENIA [None]
  - COMPLETED SUICIDE [None]
  - DISTURBANCE IN ATTENTION [None]
  - DIZZINESS [None]
  - DYSSTASIA [None]
  - DYSURIA [None]
  - HEADACHE [None]
  - HOMICIDAL IDEATION [None]
  - HYPERHIDROSIS [None]
  - INSOMNIA [None]
  - MANIA [None]
  - MULTIPLE INJURIES [None]
  - NECK PAIN [None]
  - NIGHTMARE [None]
  - PALPITATIONS [None]
  - UNEVALUABLE EVENT [None]
  - VERTIGO [None]
  - WEIGHT DECREASED [None]
